FAERS Safety Report 4442939-7 (Version None)
Quarter: 2004Q3

REPORT INFORMATION
  Report Type: 
  Country: None (occurrence: None)
  Receive Date: 20040907
  Receipt Date: 20040907
  Transmission Date: 20050211
  Serious: Yes (Hospitalization)
  Sender: FDA-Public Use
  Company Number: None

PATIENT
  Age: 71 Year
  Sex: Male

DRUGS (18)
  1. GEMCITABINE [Suspect]
     Indication: PANCREATIC CARCINOMA METASTATIC
     Dosage: 2000 MG IV
     Route: 042
     Dates: start: 20040707
  2. GEMCITABINE [Suspect]
     Indication: PANCREATIC CARCINOMA METASTATIC
     Dosage: 2000 MG IV
     Route: 042
     Dates: start: 20040714
  3. GEMCITABINE [Suspect]
     Indication: PANCREATIC CARCINOMA METASTATIC
     Dosage: 2000 MG IV
     Route: 042
     Dates: start: 20040721
  4. GEMCITABINE [Suspect]
     Indication: PANCREATIC CARCINOMA METASTATIC
     Dosage: 2000 MG IV
     Route: 042
     Dates: start: 20040728
  5. ATENOLOL [Concomitant]
  6. DARBOPOETIN ALFA W/ ALBUMIN [Concomitant]
  7. FENTANYL [Concomitant]
  8. LASIX [Concomitant]
  9. GATIFLOXACIN [Concomitant]
  10. GLYBURIDE [Concomitant]
  11. METFORMIN HCL [Concomitant]
  12. OXYCODONE HCL [Concomitant]
  13. SENNOSIDES [Concomitant]
  14. NPH INSULIN [Concomitant]
  15. LISINOPRIL [Concomitant]
  16. MORPHINE [Concomitant]
  17. SIMVASTATIN [Concomitant]
  18. WARFARIN SODIUM [Concomitant]

REACTIONS (4)
  - CELLULITIS [None]
  - OEDEMA PERIPHERAL [None]
  - RASH [None]
  - THERAPY NON-RESPONDER [None]
